FAERS Safety Report 6066734-0 (Version None)
Quarter: 2009Q1

REPORT INFORMATION
  Report Type: 
  Country: None (occurrence: None)
  Receive Date: 20090205
  Receipt Date: 20080314
  Transmission Date: 20090719
  Serious: No
  Sender: FDA-Public Use
  Company Number: US-ABBOTT-08P-163-0442750-00

PATIENT
  Sex: Male
  Weight: 95.34 kg

DRUGS (2)
  1. VICODIN [Suspect]
     Indication: PROCEDURAL PAIN
     Route: 048
     Dates: start: 20000101, end: 20000101
  2. VICODIN [Suspect]
     Indication: HAEMORRHOID OPERATION

REACTIONS (3)
  - HEADACHE [None]
  - NAUSEA [None]
  - RASH [None]
